FAERS Safety Report 20636899 (Version 1)
Quarter: 2022Q1

REPORT INFORMATION
  Report Type: Spontaneous
  Country: US (occurrence: US)
  Receive Date: 20220325
  Receipt Date: 20220325
  Transmission Date: 20220423
  Serious: Yes (Other)
  Sender: FDA-Public Use
  Company Number: US-SA-SAC20220324000539

PATIENT
  Age: 75 Year
  Sex: Male

DRUGS (1)
  1. ZANTAC [Suspect]
     Active Substance: RANITIDINE HYDROCHLORIDE
     Indication: Dyspepsia
     Dosage: UNK, QD
     Dates: start: 198912, end: 201112

REACTIONS (3)
  - Hepatic cancer [Unknown]
  - Lung neoplasm malignant [Unknown]
  - Prostate cancer [Unknown]

NARRATIVE: CASE EVENT DATE: 20090101
